FAERS Safety Report 9492289 (Version 1)
Quarter: 2013Q3

REPORT INFORMATION
  Report Type: Spontaneous
  Country: JP (occurrence: JP)
  Receive Date: 20130830
  Receipt Date: 20130830
  Transmission Date: 20140515
  Serious: Yes (Other)
  Sender: FDA-Public Use
  Company Number: JP-PFIZER INC-2013251047

PATIENT
  Sex: Female

DRUGS (2)
  1. CELECOX [Suspect]
     Indication: RHEUMATIC DISORDER
     Dosage: 200 MG, DAILY
     Route: 048
  2. RIMATIL [Suspect]
     Dosage: UNK
     Route: 048

REACTIONS (2)
  - Interstitial lung disease [Recovering/Resolving]
  - Oedema peripheral [Not Recovered/Not Resolved]
